FAERS Safety Report 15594835 (Version 5)
Quarter: 2021Q3

REPORT INFORMATION
  Report Type: Spontaneous
  Country: FR (occurrence: FR)
  Receive Date: 20181107
  Receipt Date: 20210831
  Transmission Date: 20211014
  Serious: Yes (Hospitalization, Other)
  Sender: FDA-Public Use
  Company Number: PHHY2018FR005304

PATIENT
  Sex: Male

DRUGS (11)
  1. CYCLOPHOSPHAMIDE. [Suspect]
     Active Substance: CYCLOPHOSPHAMIDE
     Indication: ACUTE LYMPHOCYTIC LEUKAEMIA
     Dosage: 860 MG,QD (860 MG, 1X/DAY:QD)
     Route: 042
     Dates: start: 20180126, end: 20180126
  2. PEGASPARGASE [Suspect]
     Active Substance: PEGASPARGASE
     Indication: ACUTE LYMPHOCYTIC LEUKAEMIA
     Dosage: 1075 IU, 1X/DAY:QD
     Route: 042
     Dates: start: 20180209, end: 20180209
  3. METHOTREXATE. [Suspect]
     Active Substance: METHOTREXATE
     Indication: ACUTE LYMPHOCYTIC LEUKAEMIA
     Dosage: 12 MG,QD (12 MG, 1X/DAY:QD)
     Route: 037
     Dates: start: 20180129
  4. 6?MERCAPTOPURINE MONOHYDRATE [Suspect]
     Active Substance: MERCAPTOPURINE
     Indication: ACUTE LYMPHOCYTIC LEUKAEMIA
     Dosage: 51.6 MG, 1X/DAY:QD
     Route: 048
     Dates: start: 20180126, end: 20180209
  5. PLATELETS [Concomitant]
     Active Substance: HUMAN PLATELET, ALLOGENIC
     Indication: PRODUCT USED FOR UNKNOWN INDICATION
     Dosage: UNK
     Route: 065
  6. VINCRISTINE [Suspect]
     Active Substance: VINCRISTINE
     Indication: ACUTE LYMPHOCYTIC LEUKAEMIA
     Dosage: 1.3 MG,QD (1.3 MG, 1X/DAY:QD)
     Route: 042
     Dates: start: 20180209
  7. 6?MERCAPTOPURINE MONOHYDRATE [Suspect]
     Active Substance: MERCAPTOPURINE
     Dosage: 51.6 MG, QD
     Route: 048
     Dates: start: 20180209
  8. CYTARABINE. [Suspect]
     Active Substance: CYTARABINE
     Indication: ACUTE LYMPHOCYTIC LEUKAEMIA
     Dosage: 30 MG,QD (30 MG, 1X/DAY:QD)
     Route: 037
     Dates: start: 20180129
  9. HYDROCORTISONE. [Suspect]
     Active Substance: HYDROCORTISONE
     Indication: ACUTE LYMPHOCYTIC LEUKAEMIA
     Dosage: 15 MG,QD (15 MG, 1X/DAY:QD)
     Route: 037
     Dates: start: 20180129
  10. PEGASPARGASE [Suspect]
     Active Substance: PEGASPARGASE
     Dosage: 1075 UNK,QD (1075 IU, 1X/DAY:QD)
     Route: 042
     Dates: start: 20180209, end: 20180209
  11. CYTARABINE. [Suspect]
     Active Substance: CYTARABINE
     Dosage: 65 MG,QD (65 MG, 1X/DAY:QD)
     Route: 042
     Dates: start: 20180129

REACTIONS (1)
  - Febrile bone marrow aplasia [Recovered/Resolved]

NARRATIVE: CASE EVENT DATE: 20180211
